FAERS Safety Report 17093265 (Version 1)
Quarter: 2019Q4

REPORT INFORMATION
  Report Type: Spontaneous
  Country: US (occurrence: US)
  Receive Date: 20191129
  Receipt Date: 20191129
  Transmission Date: 20200122
  Serious: No
  Sender: FDA-Public Use
  Company Number: US-TEVA-2019-US-1143659

PATIENT
  Age: 79 Year
  Sex: Female

DRUGS (1)
  1. CLOPIDOGREL [Suspect]
     Active Substance: CLOPIDOGREL BISULFATE
     Indication: MUSCULOSKELETAL STIFFNESS
     Dosage: DOSE: 1 TABLET AT BEDTIME
     Route: 065
     Dates: start: 20191120, end: 20191121

REACTIONS (8)
  - Fall [Unknown]
  - Balance disorder [Unknown]
  - Dizziness [Unknown]
  - Physical disability [Unknown]
  - Asthenia [Unknown]
  - Balance disorder [Unknown]
  - Dysstasia [Unknown]
  - Confusional state [Unknown]

NARRATIVE: CASE EVENT DATE: 20191120
